FAERS Safety Report 20534640 (Version 1)
Quarter: 2022Q1

REPORT INFORMATION
  Report Type: Spontaneous
  Country: ZA (occurrence: ZA)
  Receive Date: 20220302
  Receipt Date: 20220302
  Transmission Date: 20220423
  Serious: Yes (Hospitalization)
  Sender: FDA-Public Use
  Company Number: ZA-NOVOPROD-895619

PATIENT
  Age: 51 Year
  Sex: Female

DRUGS (1)
  1. INSULIN ASPART [Suspect]
     Active Substance: INSULIN ASPART
     Indication: Diabetes mellitus
     Dosage: 52 IU, QD (30 IU + 20 IU)
     Route: 065

REACTIONS (3)
  - COVID-19 [Unknown]
  - COVID-19 [Unknown]
  - Diabetes mellitus inadequate control [Unknown]
